FAERS Safety Report 8812661 (Version 1)
Quarter: 2012Q4

REPORT INFORMATION
  Report Type: 
  Country: DE (occurrence: DE)
  Receive Date: 20120927
  Receipt Date: 20120927
  Transmission Date: 20130627
  Serious: Yes (Other)
  Sender: FDA-Public Use
  Company Number: PHHY2012DE084020

PATIENT
  Age: 38 Year
  Sex: Male

DRUGS (8)
  1. MYCOPHENOLATE MOFETIL [Suspect]
     Indication: RENAL TRANSPLANT
     Dosage: 360 mg, per day
  2. MYCOPHENOLATE MOFETIL [Suspect]
     Indication: PANCREAS TRANSPLANT
  3. CYCLOPHOSPHAMIDE [Suspect]
     Indication: BURKITT^S LYMPHOMA STAGE III
     Dosage: 200 mg/m2, from day 1-5
  4. DOXORUBICIN [Suspect]
     Indication: BURKITT^S LYMPHOMA STAGE III
     Route: 037
  5. VINCRISTINE [Suspect]
     Indication: BURKITT^S LYMPHOMA STAGE III
  6. PREDNISOLONE [Suspect]
     Indication: BURKITT^S LYMPHOMA STAGE III
  7. RITUXIMAB [Suspect]
     Indication: BURKITT^S LYMPHOMA STAGE III
  8. SIROLIMUS [Concomitant]

REACTIONS (1)
  - Leukopenia [Unknown]
